FAERS Safety Report 10983073 (Version 2)
Quarter: 2015Q2

REPORT INFORMATION
  Report Type: Spontaneous
  Country: GB (occurrence: GB)
  Receive Date: 20150403
  Receipt Date: 20150601
  Transmission Date: 20150821
  Serious: Yes (Death, Life-Threatening, Hospitalization)
  Sender: FDA-Public Use
  Company Number: GB-WATSON-2015-06925

PATIENT
  Age: 55 Year
  Sex: Female
  Weight: 144 kg

DRUGS (5)
  1. CLARITHROMYCIN. [Concomitant]
     Active Substance: CLARITHROMYCIN
     Indication: CELLULITIS
     Dosage: UNK
     Route: 065
  2. DAPAGLIFLOZIN [Suspect]
     Active Substance: DAPAGLIFLOZIN
     Indication: TYPE 2 DIABETES MELLITUS
     Dosage: 10 MG, DAILY
     Route: 048
     Dates: start: 20150219, end: 20150302
  3. METFORMIN (UNKNOWN) [Suspect]
     Active Substance: METFORMIN HYDROCHLORIDE
     Indication: TYPE 2 DIABETES MELLITUS
     Dosage: 850 MG, BID
     Route: 048
     Dates: start: 20150219, end: 20150226
  4. CANDESARTAN [Concomitant]
     Active Substance: CANDESARTAN
     Indication: HYPERTENSION
     Dosage: 8 MG, DAILY
     Route: 048
     Dates: start: 20141215, end: 20150302
  5. FUROSEMIDE. [Concomitant]
     Active Substance: FUROSEMIDE
     Indication: HYPERTENSION
     Dosage: 40 MG, QAM
     Route: 048
     Dates: end: 20150302

REACTIONS (5)
  - Malaise [Unknown]
  - Autoimmune haemolytic anaemia [Fatal]
  - Nausea [Unknown]
  - Multi-organ failure [Not Recovered/Not Resolved]
  - Jaundice [Unknown]

NARRATIVE: CASE EVENT DATE: 20150302
